FAERS Safety Report 6933755-2 (Version None)
Quarter: 2010Q3

REPORT INFORMATION
  Report Type: 
  Country: None (occurrence: None)
  Receive Date: 20100820
  Receipt Date: 20100810
  Transmission Date: 20110219
  Serious: Yes (Other)
  Sender: FDA-Public Use
  Company Number: US-PFIZER INC-2010101070

PATIENT
  Sex: Female
  Weight: 72.562 kg

DRUGS (1)
  1. CHANTIX [Suspect]
     Dosage: UNK
     Dates: end: 20100806

REACTIONS (2)
  - AFFECT LABILITY [None]
  - DEPRESSION [None]
